FAERS Safety Report 7467199-4 (Version None)
Quarter: 2011Q2

REPORT INFORMATION
  Report Type: 
  Country: None (occurrence: None)
  Receive Date: 20110509
  Receipt Date: 20101027
  Transmission Date: 20111010
  Serious: No
  Sender: FDA-Public Use
  Company Number: US-ALEXION-A201001376

PATIENT
  Sex: Female

DRUGS (3)
  1. POTASSIUM CHLORIDE [Suspect]
     Dosage: 10 MEQ, QD
     Route: 048
  2. SOLIRIS [Suspect]
     Indication: PAROXYSMAL NOCTURNAL HAEMOGLOBINURIA
     Dosage: 900 MG, Q2W
     Route: 042
  3. DETROL                             /01350201/ [Concomitant]
     Dosage: 4 MG, QD
     Route: 048

REACTIONS (4)
  - FATIGUE [None]
  - BLOOD LACTATE DEHYDROGENASE INCREASED [None]
  - DYSPNOEA [None]
  - HEADACHE [None]
